FAERS Safety Report 25717829 (Version 1)
Quarter: 2025Q3

REPORT INFORMATION
  Report Type: Spontaneous
  Country: US (occurrence: US)
  Receive Date: 20250822
  Receipt Date: 20250822
  Transmission Date: 20251021
  Serious: Yes (Death, Other)
  Sender: ADMA BIOLOGICS
  Company Number: US-ADMA BIOLOGICS INC.-US-2025ADM000249

PATIENT
  Age: 49 Year
  Sex: Female

DRUGS (3)
  1. HUMAN IMMUNOGLOBULIN G [Suspect]
     Active Substance: HUMAN IMMUNOGLOBULIN G
     Indication: Immune tolerance induction
     Route: 042
  2. TOLODODEKIN ALFA [Suspect]
     Active Substance: TOLODODEKIN ALFA
     Indication: Immune tolerance induction
     Route: 058
  3. CAMPATH [Suspect]
     Active Substance: ALEMTUZUMAB
     Indication: Immune tolerance induction
     Route: 065

REACTIONS (2)
  - Central nervous system lymphoma [Fatal]
  - Off label use [Unknown]
